FAERS Safety Report 26095627 (Version 1)
Quarter: 2025Q4

REPORT INFORMATION
  Report Type: Spontaneous
  Country: EU (occurrence: EU)
  Receive Date: 20251127
  Receipt Date: 20251127
  Transmission Date: 20260118
  Serious: Yes (Hospitalization)
  Sender: NOVARTIS
  Company Number: EU-002147023-NVSC2025DE180242

PATIENT
  Sex: Male

DRUGS (3)
  1. PLUVICTO [Suspect]
     Active Substance: LUTETIUM LU-177 VIPIVOTIDE TETRAXETAN
     Indication: Prostate cancer
     Dosage: UNK, ONCE/SINGLE
     Route: 065
     Dates: start: 20250630, end: 20250630
  2. PLUVICTO [Suspect]
     Active Substance: LUTETIUM LU-177 VIPIVOTIDE TETRAXETAN
     Dosage: UNK, ONCE/SINGLE
     Route: 065
     Dates: start: 20250819, end: 20250819
  3. PLUVICTO [Suspect]
     Active Substance: LUTETIUM LU-177 VIPIVOTIDE TETRAXETAN
     Dosage: UNK, ONCE/SINGLE
     Route: 065
     Dates: start: 20251008, end: 20251008

REACTIONS (1)
  - Infection [Unknown]

NARRATIVE: CASE EVENT DATE: 20251119
